FAERS Safety Report 9607772 (Version 1)
Quarter: 2013Q4

REPORT INFORMATION
  Report Type: Spontaneous
  Country: US (occurrence: US)
  Receive Date: 20131009
  Receipt Date: 20131009
  Transmission Date: 20140711
  Serious: Yes (Hospitalization)
  Sender: FDA-Public Use
  Company Number: US-B.I. PHARMACEUTICALS,INC./RIDGEFIELD-2013-BI-31100BP

PATIENT
  Sex: Male
  Weight: 59 kg

DRUGS (6)
  1. COMBIVENT [Suspect]
     Indication: ASTHMA
     Dosage: DOSE PER APPLICATION: 18 MCG / 103 MCG;
     Route: 055
     Dates: start: 2003, end: 201309
  2. ADVAIR [Concomitant]
     Dosage: FORMULATION: INHALATION SOLUTION
     Route: 055
  3. PLAVIX [Concomitant]
     Indication: ANTICOAGULANT THERAPY
     Route: 048
  4. BABY ASPIRIN [Concomitant]
     Indication: ANTICOAGULANT THERAPY
     Route: 048
  5. CARBO/LEVO DOPPA [Concomitant]
     Indication: PARKINSON^S DISEASE
     Dosage: 8 ANZ
     Route: 048
  6. ARECIPT [Concomitant]
     Indication: COGNITIVE DISORDER
     Route: 048

REACTIONS (5)
  - Haematoma [Recovered/Resolved]
  - Parkinson^s disease [Recovered/Resolved]
  - Dyspnoea exertional [Not Recovered/Not Resolved]
  - Fall [Recovered/Resolved]
  - Off label use [Not Recovered/Not Resolved]
